FAERS Safety Report 4559082-9 (Version None)
Quarter: 2005Q1

REPORT INFORMATION
  Report Type: 
  Country: None (occurrence: None)
  Receive Date: 20050119
  Receipt Date: 20050107
  Transmission Date: 20050727
  Serious: Yes (Other)
  Sender: FDA-Public Use
  Company Number: 2005JP000076

PATIENT
  Age: 25 Year
  Sex: Female

DRUGS (3)
  1. PROGRAF [Suspect]
  2. METHYLPREDNISOLONE [Concomitant]
  3. MYCOPHENOLATE MOFETIL               (MYCOPHENOLATE MOFETIL) [Concomitant]

REACTIONS (4)
  - DISEASE RECURRENCE [None]
  - GLOMERULONEPHRITIS PROLIFERATIVE [None]
  - PROTEINURIA [None]
  - URETERIC STENOSIS [None]
